FAERS Safety Report 24569224 (Version 3)
Quarter: 2024Q4

REPORT INFORMATION
  Report Type: Spontaneous
  Country: BR (occurrence: BR)
  Receive Date: 20241031
  Receipt Date: 20241113
  Transmission Date: 20250114
  Serious: Yes (Other)
  Sender: MERCK
  Company Number: BR-009507513-2410BRA011121

PATIENT
  Sex: Female

DRUGS (1)
  1. KEYTRUDA [Suspect]
     Active Substance: PEMBROLIZUMAB
     Indication: Malignant melanoma stage II
     Dosage: 17 CYCLES LAST 1 YEAR

REACTIONS (1)
  - Deafness transitory [Recovering/Resolving]
